FAERS Safety Report 5379533-X (Version None)
Quarter: 2007Q3

REPORT INFORMATION
  Report Type: 
  Country: None (occurrence: None)
  Receive Date: 20070703
  Receipt Date: 20070619
  Transmission Date: 20080115
  Serious: Yes (Death)
  Sender: FDA-Public Use
  Company Number: 015212

PATIENT
  Age: 24 Year
  Sex: Male

DRUGS (1)
  1. CLARAVIS [Suspect]
     Indication: ACNE
     Dosage: 60 MG, QD, ORAL
     Route: 048
     Dates: start: 20070213, end: 20070616

REACTIONS (1)
  - ACCIDENTAL DEATH [None]
